FAERS Safety Report 6049491-3 (Version None)
Quarter: 2009Q1

REPORT INFORMATION
  Report Type: 
  Country: None (occurrence: None)
  Receive Date: 20090123
  Receipt Date: 20090119
  Transmission Date: 20090719
  Serious: Yes (Death)
  Sender: FDA-Public Use
  Company Number: US-GILEAD-2009-0019901

PATIENT
  Sex: Male
  Weight: 93.524 kg

DRUGS (8)
  1. LETAIRIS [Suspect]
     Indication: PULMONARY ARTERIAL HYPERTENSION
     Route: 048
     Dates: start: 20071102, end: 20090113
  2. PRINIVIL [Concomitant]
  3. LASIX [Concomitant]
  4. ULTRACET [Concomitant]
  5. REVATIO [Concomitant]
  6. LIPITOR [Concomitant]
  7. ASPIRIN [Concomitant]
  8. GLIPIZIDE [Concomitant]

REACTIONS (1)
  - DEATH [None]
